FAERS Safety Report 4404501-1 (Version None)
Quarter: 2004Q3

REPORT INFORMATION
  Report Type: 
  Country: None (occurrence: None)
  Receive Date: 20040720
  Receipt Date: 20040708
  Transmission Date: 20050211
  Serious: No
  Sender: FDA-Public Use
  Company Number: 2004UW14129

PATIENT
  Age: 26 Year
  Sex: Female

DRUGS (2)
  1. DIPRIVAN [Suspect]
     Indication: ANAESTHESIA
     Dosage: 140 MG ONCE IV
     Route: 042
     Dates: start: 20040707, end: 20040707
  2. DIPRIVAN [Suspect]
     Indication: CYSTOSCOPY
     Dosage: 140 MG ONCE IV
     Route: 042
     Dates: start: 20040707, end: 20040707

REACTIONS (3)
  - ANTINUCLEAR ANTIBODY POSITIVE [None]
  - POST PROCEDURAL COMPLICATION [None]
  - PULMONARY ALVEOLAR HAEMORRHAGE [None]
